FAERS Safety Report 16730372 (Version 1)
Quarter: 2019Q4

REPORT INFORMATION
  Report Type: Spontaneous
  Country: US (occurrence: US)
  Receive Date: 20190821
  Receipt Date: 20190821
  Transmission Date: 20200122
  Serious: Yes (Life-Threatening)
  Sender: FDA-Public Use
  Company Number: None

PATIENT
  Age: 5 Year
  Sex: Male
  Weight: 25.2 kg

DRUGS (2)
  1. METHYLPHENIDATE. [Suspect]
     Active Substance: METHYLPHENIDATE
     Indication: ATTENTION DEFICIT/HYPERACTIVITY DISORDER
     Route: 048
     Dates: start: 20190810, end: 20190813
  2. GUANFACINE. [Concomitant]
     Active Substance: GUANFACINE
     Dates: start: 20180725

REACTIONS (3)
  - Agitation [None]
  - Intentional self-injury [None]
  - Loss of consciousness [None]

NARRATIVE: CASE EVENT DATE: 20190813
